FAERS Safety Report 11483215 (Version 1)
Quarter: 2015Q3

REPORT INFORMATION
  Report Type: Spontaneous
  Country: US (occurrence: None)
  Receive Date: 20150909
  Receipt Date: 20150909
  Transmission Date: 20151125
  Serious: Yes (Death, Life-Threatening, Hospitalization)
  Sender: FDA-Public Use
  Company Number: None

PATIENT
  Age: 32 Year
  Sex: Male
  Weight: 55 kg

DRUGS (3)
  1. CISPLATIN 20 MG/M2 [Suspect]
     Active Substance: CISPLATIN
     Indication: TESTIS CANCER
     Dosage: RECEIVED CYCLE 1 DAYS 1-5 Q21 DAYS
     Dates: start: 20150803, end: 20150807
  2. ETOPOSIDE 100 MG/M2 [Suspect]
     Active Substance: ETOPOSIDE
     Indication: TESTIS CANCER
     Dosage: RECEIVED CYCLE 1 DAYS 1-5 Q21 DAYS
     Route: 042
     Dates: start: 20150803, end: 20150807
  3. NEULASTA [Concomitant]
     Active Substance: PEGFILGRASTIM

REACTIONS (8)
  - Nausea [None]
  - Pneumonia aspiration [None]
  - Blood lactic acid increased [None]
  - Vomiting [None]
  - Leukopenia [None]
  - Escherichia urinary tract infection [None]
  - Septic shock [None]
  - Febrile neutropenia [None]

NARRATIVE: CASE EVENT DATE: 20150811
